FAERS Safety Report 5290580-9 (Version None)
Quarter: 2007Q2

REPORT INFORMATION
  Report Type: 
  Country: None (occurrence: None)
  Receive Date: 20070406
  Receipt Date: 20070406
  Transmission Date: 20071010
  Serious: Yes (Hospitalization)
  Sender: FDA-Public Use
  Company Number: None

PATIENT
  Age: 63 Year
  Sex: Male
  Weight: 180 kg

DRUGS (8)
  1. PHENYTOIN [Suspect]
     Indication: CONVULSION
     Dosage: 200MG BID
  2. BACTRIM [Concomitant]
  3. PREDNISONE TAB [Concomitant]
  4. .. [Concomitant]
  5. LEVETIRACETAM [Concomitant]
  6. QUETIAPINE FUMARATE [Concomitant]
  7. PREVACID [Concomitant]
  8. MYCOPHENOLATE MOFETIL [Concomitant]

REACTIONS (8)
  - BRADYCARDIA [None]
  - DEPRESSED LEVEL OF CONSCIOUSNESS [None]
  - HYPOTHERMIA [None]
  - INTENTIONAL OVERDOSE [None]
  - LETHARGY [None]
  - LOSS OF CONSCIOUSNESS [None]
  - NYSTAGMUS [None]
  - THERAPEUTIC AGENT TOXICITY [None]
